FAERS Safety Report 10382581 (Version 1)
Quarter: 2014Q3

REPORT INFORMATION
  Report Type: Spontaneous
  Country: US (occurrence: US)
  Receive Date: 20140813
  Receipt Date: 20140813
  Transmission Date: 20150326
  Serious: No
  Sender: FDA-Public Use
  Company Number: US-SA-2013SA106488

PATIENT
  Age: 62 Year
  Sex: Female

DRUGS (2)
  1. MULTAQ [Suspect]
     Active Substance: DRONEDARONE
     Indication: ATRIAL FIBRILLATION
     Route: 048
     Dates: start: 20131012, end: 20131013
  2. AMIODARONE [Suspect]
     Active Substance: AMIODARONE
     Route: 065

REACTIONS (7)
  - Limb discomfort [Unknown]
  - Extra dose administered [Unknown]
  - Nausea [Recovered/Resolved]
  - Blood pressure decreased [Unknown]
  - Feeling abnormal [Unknown]
  - Dizziness [Unknown]
  - Throat irritation [Unknown]
